FAERS Safety Report 9700145 (Version 1)
Quarter: 2013Q4

REPORT INFORMATION
  Report Type: Spontaneous
  Country: US (occurrence: None)
  Receive Date: 20131108
  Receipt Date: 20131108
  Transmission Date: 20140711
  Serious: Yes (Other)
  Sender: FDA-Public Use
  Company Number: 2013038704

PATIENT
  Age: 15 Year
  Sex: Male

DRUGS (1)
  1. PRIVIGEN [Suspect]

REACTIONS (3)
  - Meningitis [None]
  - Nosocomial infection [None]
  - Unevaluable event [None]
